FAERS Safety Report 26064019 (Version 1)
Quarter: 2025Q4

REPORT INFORMATION
  Report Type: Spontaneous
  Country: JP (occurrence: JP)
  Receive Date: 20251119
  Receipt Date: 20251119
  Transmission Date: 20260117
  Serious: Yes (Hospitalization, Other)
  Sender: AMGEN
  Company Number: JP-AMGEN-JPNSP2025225200

PATIENT
  Age: 74 Year
  Sex: Female

DRUGS (7)
  1. FILGRASTIM [Suspect]
     Active Substance: FILGRASTIM
     Indication: Autoimmune neutropenia
     Dosage: UNK
     Route: 065
  2. FILGRASTIM [Suspect]
     Active Substance: FILGRASTIM
     Dosage: 75 MICROGRAM (FOR 3 CONSECUTIVE DAYS BEFORE SURGERY (2, 3, AND 4 DAYS BEFORE SURGERY) (ON THE 2ND AN
     Route: 065
  3. FILGRASTIM [Suspect]
     Active Substance: FILGRASTIM
     Dosage: 75 MICROGRAM, Q2WK (WAS ADMINISTERED AT DAY 8) (8 CYCLES)
     Route: 065
  4. FILGRASTIM [Suspect]
     Active Substance: FILGRASTIM
     Dosage: 75 MICROGRAM (ADMINISTRATION AT 1 AND 3 DAYS BEFORE SURGERY AND ON THE 6TH POD (POST OPERATIVE DAY))
     Route: 065
  5. BEVACIZUMAB [Suspect]
     Active Substance: BEVACIZUMAB
     Indication: Metastases to liver
     Dosage: UNK UNK, Q2WK (8 CYCLES)
     Route: 065
  6. PIPERACILLIN SODIUM\TAZOBACTAM SODIUM [Concomitant]
     Active Substance: PIPERACILLIN SODIUM\TAZOBACTAM SODIUM
     Dosage: UNK
  7. SULFAMETHOXAZOLE\TRIMETHOPRIM [Concomitant]
     Active Substance: SULFAMETHOXAZOLE\TRIMETHOPRIM
     Dosage: UNK UNK, 2 TIMES/WK

REACTIONS (3)
  - Colon cancer [Unknown]
  - Metastases to liver [Unknown]
  - Large intestinal obstruction [Unknown]
